FAERS Safety Report 9006919 (Version 1)
Quarter: 2013Q1

REPORT INFORMATION
  Report Type: Other
  Country: FR (occurrence: FR)
  Receive Date: 20130110
  Receipt Date: 20130110
  Transmission Date: 20140127
  Serious: Yes (Hospitalization, Other)
  Sender: FDA-Public Use
  Company Number: FR-SHIRE-ALL1-2012-06650

PATIENT
  Age: 44 Year
  Sex: Female

DRUGS (1)
  1. 426 (MIDODRINE) [Suspect]
     Indication: SUICIDE ATTEMPT
     Dosage: UNK MG, UNKNOWN (2.5 MG TABLETS)
     Route: 048
     Dates: start: 20121201, end: 20121201

REACTIONS (3)
  - Suicide attempt [Recovered/Resolved]
  - Intentional overdose [Recovered/Resolved]
  - Bradycardia [Recovered/Resolved]
